FAERS Safety Report 13907605 (Version 1)
Quarter: 2017Q3

REPORT INFORMATION
  Report Type: Spontaneous
  Country: US (occurrence: US)
  Receive Date: 20170825
  Receipt Date: 20170825
  Transmission Date: 20171127
  Serious: No
  Sender: FDA-Public Use
  Company Number: US-ROCHE-1113507

PATIENT
  Age: 56 Year
  Sex: Female
  Weight: 75.2 kg

DRUGS (1)
  1. NUTROPIN AQ [Suspect]
     Active Substance: SOMATROPIN
     Indication: HYPOTHALAMO-PITUITARY DISORDER
     Route: 058

REACTIONS (2)
  - Arthritis [Unknown]
  - Thyroid disorder [Unknown]

NARRATIVE: CASE EVENT DATE: 19990513
